FAERS Safety Report 9344982 (Version 1)
Quarter: 2013Q2

REPORT INFORMATION
  Report Type: Report from Study
  Country: US (occurrence: US)
  Receive Date: 20130612
  Receipt Date: 20130612
  Transmission Date: 20140414
  Serious: Yes (Hospitalization, Other)
  Sender: FDA-Public Use
  Company Number: US-US-EMD SERONO, INC.-7216275

PATIENT
  Sex: Female

DRUGS (5)
  1. REBIF [Suspect]
     Indication: PRODUCT USED FOR UNKNOWN INDICATION
     Route: 058
     Dates: start: 200603, end: 201108
  2. REBIF [Suspect]
     Route: 058
     Dates: start: 20120601
  3. ANTIDEPRESSANTS [Concomitant]
     Indication: DEPRESSION
  4. TYLENOL EXTRA STRENGTH [Concomitant]
     Indication: PREMEDICATION
  5. PAMELOR [Concomitant]
     Indication: PREMEDICATION

REACTIONS (9)
  - Intervertebral disc protrusion [Recovered/Resolved]
  - Nephrolithiasis [Unknown]
  - Intervertebral disc degeneration [Recovered/Resolved]
  - Vitamin D deficiency [Not Recovered/Not Resolved]
  - Myalgia [Not Recovered/Not Resolved]
  - Depression [Not Recovered/Not Resolved]
  - Fatigue [Not Recovered/Not Resolved]
  - Injection site mass [Not Recovered/Not Resolved]
  - Injection site nodule [Not Recovered/Not Resolved]
